FAERS Safety Report 17963631 (Version 1)
Quarter: 2020Q2

REPORT INFORMATION
  Report Type: Spontaneous
  Country: DE (occurrence: DE)
  Receive Date: 20200630
  Receipt Date: 20200630
  Transmission Date: 20200714
  Serious: Yes (Death, Other)
  Sender: FDA-Public Use
  Company Number: DE-GLAXOSMITHKLINE-DE2020EME086986

PATIENT
  Age: 61 Year
  Sex: Female

DRUGS (4)
  1. METOPROLOL. [Concomitant]
     Active Substance: METOPROLOL
     Indication: CORONARY ARTERY DISEASE
     Dosage: 100 MG
  2. CANDESARTAN. [Concomitant]
     Active Substance: CANDESARTAN
     Indication: ATRIAL FIBRILLATION
     Dosage: 32 MG
  3. RELVAR ELLIPTA [Suspect]
     Active Substance: FLUTICASONE FUROATE\VILANTEROL TRIFENATATE
     Indication: PRODUCT USED FOR UNKNOWN INDICATION
     Dosage: UNK,184
  4. L-THYROXINE [Concomitant]
     Active Substance: LEVOTHYROXINE
     Indication: HYPOTHYROIDISM
     Dosage: 150 UG

REACTIONS (3)
  - Sleep disorder [Recovered/Resolved]
  - Cardiac failure [Fatal]
  - Dysphonia [Recovered/Resolved]

NARRATIVE: CASE EVENT DATE: 20191209
